FAERS Safety Report 13227377 (Version 2)
Quarter: 2017Q1

REPORT INFORMATION
  Report Type: Spontaneous
  Country: US (occurrence: US)
  Receive Date: 20170213
  Receipt Date: 20170228
  Transmission Date: 20170428
  Serious: No
  Sender: FDA-Public Use
  Company Number: US-INCYTE CORPORATION-2017IN000835

PATIENT
  Age: 68 Year
  Sex: Female

DRUGS (1)
  1. JAKAFI [Suspect]
     Active Substance: RUXOLITINIB
     Indication: MYELOFIBROSIS
     Dosage: 10 MG, BID (TWICE DAILY)
     Route: 048
     Dates: start: 20161229

REACTIONS (8)
  - Pain in extremity [Unknown]
  - Sputum discoloured [Unknown]
  - Dizziness [Unknown]
  - Fatigue [Unknown]
  - Vasodilatation [Unknown]
  - Myalgia [Unknown]
  - Pruritus [Unknown]
  - Hot flush [Unknown]

NARRATIVE: CASE EVENT DATE: 20170201
